FAERS Safety Report 8906256 (Version 1)
Quarter: 2012Q4

REPORT INFORMATION
  Report Type: Spontaneous
  Country: US (occurrence: None)
  Receive Date: 20121106
  Receipt Date: 20121106
  Transmission Date: 20130627
  Serious: Yes (Other)
  Sender: FDA-Public Use
  Company Number: JPI-P-026044

PATIENT
  Age: 43 Year
  Sex: Female
  Weight: 44.45 kg

DRUGS (7)
  1. XYREM (500 MILLIGRAM/MILLILITERS, SOLUTION)(SODIUM OXYBATE) [Suspect]
     Indication: CATAPLEXY
     Dosage: (2.5 gm, 2 in 1 D)
     Route: 048
     Dates: start: 20031119
  2. XYREM (500 MILLIGRAM/MILLILITERS, SOLUTION)(SODIUM OXYBATE) [Suspect]
     Indication: CATAPLEXY
     Route: 048
  3. XYREM (500 MILLIGRAM/MILLILITERS, SOLUTION)(SODIUM OXYBATE) [Suspect]
     Indication: CATAPLEXY
     Dosage: (4.5 gm, 2 i n 1 D)
     Route: 048
     Dates: start: 20120416
  4. SUMATRIPTAN SUCCINATE(TABLETS) [Concomitant]
  5. METHAMPHETAMINE(TABLETS) [Concomitant]
  6. CYCLOBENZAPRINE HCL (TABLETS) [Concomitant]
  7. GABAPENTIN (CAPSULES) [Concomitant]

REACTIONS (1)
  - Hysterectomy [None]
